FAERS Safety Report 15664508 (Version 1)
Quarter: 2018Q4

REPORT INFORMATION
  Report Type: Spontaneous
  Country: US (occurrence: US)
  Receive Date: 20181116
  Receipt Date: 20181116
  Transmission Date: 20190205
  Serious: Yes (Hospitalization)
  Sender: FDA-Public Use
  Company Number: None

PATIENT
  Age: 50 Year
  Sex: Male
  Weight: 85.28 kg

DRUGS (13)
  1. REMERON [Concomitant]
     Active Substance: MIRTAZAPINE
  2. ZEPATIER [Suspect]
     Active Substance: ELBASVIR\GRAZOPREVIR
     Indication: HEPATITIS C
     Dosage: OTHER DOSE:50/100MG;?
     Route: 048
     Dates: start: 20180125, end: 20180419
  3. LISINOPRIL. [Concomitant]
     Active Substance: LISINOPRIL
  4. MACROBID [Concomitant]
     Active Substance: NITROFURANTOIN\NITROFURANTOIN MONOHYDRATE
  5. INDERAL [Concomitant]
     Active Substance: PROPRANOLOL HYDROCHLORIDE
  6. TRAMADOL. [Concomitant]
     Active Substance: TRAMADOL
  7. DOXEPINE [Concomitant]
     Active Substance: DOXEPIN
  8. METHOCARBAMOL. [Concomitant]
     Active Substance: METHOCARBAMOL
  9. XIFAXAN [Concomitant]
     Active Substance: RIFAXIMIN
  10. LACTULOSE. [Concomitant]
     Active Substance: LACTULOSE
  11. CARVEDILOL. [Concomitant]
     Active Substance: CARVEDILOL
  12. CHLORTHALIDONE. [Concomitant]
     Active Substance: CHLORTHALIDONE
  13. CLODINE [Concomitant]
     Active Substance: TICLOPIDINE HYDROCHLORIDE

REACTIONS (1)
  - Bradycardia [None]

NARRATIVE: CASE EVENT DATE: 20180313
